FAERS Safety Report 13303776 (Version 3)
Quarter: 2017Q4

REPORT INFORMATION
  Report Type: Report from Study
  Country: US (occurrence: US)
  Receive Date: 20170307
  Receipt Date: 20171222
  Transmission Date: 20180320
  Serious: Yes (Other)
  Sender: FDA-Public Use
  Company Number: US-JAZZ-2017-US-001488

PATIENT
  Sex: Female

DRUGS (27)
  1. LABETALOL HCL [Concomitant]
     Active Substance: LABETALOL HYDROCHLORIDE
  2. RESTORIL [Concomitant]
     Active Substance: TEMAZEPAM
  3. GLYBURIDE. [Concomitant]
     Active Substance: GLYBURIDE
  4. VITAMIN D                          /00107901/ [Concomitant]
     Active Substance: ERGOCALCIFEROL
  5. XYREM [Suspect]
     Active Substance: SODIUM OXYBATE
     Indication: CATAPLEXY
     Dosage: DOSE ADJUSTMENT
     Route: 048
     Dates: start: 2010, end: 2013
  6. XYREM [Suspect]
     Active Substance: SODIUM OXYBATE
     Dosage: 4.5 G, BID
     Route: 048
     Dates: start: 201408
  7. GABAPENTIN. [Concomitant]
     Active Substance: GABAPENTIN
  8. IBUPROFEN. [Concomitant]
     Active Substance: IBUPROFEN
  9. MELATONIN [Concomitant]
     Active Substance: MELATONIN
  10. XYREM [Suspect]
     Active Substance: SODIUM OXYBATE
     Indication: NARCOLEPSY
     Dosage: 2.25G, BID
     Route: 048
     Dates: start: 201007, end: 2010
  11. NUVIGIL [Concomitant]
     Active Substance: ARMODAFINIL
  12. SPIRONOLACTONE. [Concomitant]
     Active Substance: SPIRONOLACTONE
  13. POTASSIUM CHLORIDE. [Concomitant]
     Active Substance: POTASSIUM CHLORIDE
  14. CLONIDINE. [Concomitant]
     Active Substance: CLONIDINE
  15. VICODIN [Concomitant]
     Active Substance: ACETAMINOPHEN\HYDROCODONE BITARTRATE
  16. PROMETHAZINE                       /00033002/ [Concomitant]
     Active Substance: PROMETHAZINE HYDROCHLORIDE
  17. LISINOPRIL. [Concomitant]
     Active Substance: LISINOPRIL
  18. CLARITHROMYCIN. [Concomitant]
     Active Substance: CLARITHROMYCIN
  19. FERROUS FUMARATE [Concomitant]
     Active Substance: FERROUS FUMARATE
  20. METFORMIN HCL [Concomitant]
     Active Substance: METFORMIN HYDROCHLORIDE
  21. DIPHENHYDRAMINE                    /00000402/ [Concomitant]
     Active Substance: DIPHENHYDRAMINE
  22. HUMALOG [Concomitant]
     Active Substance: INSULIN LISPRO
  23. OMEGA-3                            /01866101/ [Concomitant]
     Active Substance: OMEGA-3 FATTY ACIDS
  24. ZYPREXA [Concomitant]
     Active Substance: OLANZAPINE
  25. PROZAC [Concomitant]
     Active Substance: FLUOXETINE HYDROCHLORIDE
  26. BRINTELLIX [Concomitant]
     Active Substance: VORTIOXETINE HYDROBROMIDE
  27. CARISOPRODOL. [Concomitant]
     Active Substance: CARISOPRODOL

REACTIONS (2)
  - Memory impairment [Unknown]
  - Lumbar spinal stenosis [Recovered/Resolved with Sequelae]
